FAERS Safety Report 8264175-9 (Version None)
Quarter: 2012Q2

REPORT INFORMATION
  Report Type: 
  Country: None (occurrence: None)
  Receive Date: 20120403
  Receipt Date: 20120321
  Transmission Date: 20120825
  Serious: Yes (Other)
  Sender: FDA-Public Use
  Company Number: ABR_00410_2012

PATIENT
  Sex: Female

DRUGS (1)
  1. ERYTHROMYCIN [Suspect]
     Indication: CHRONIC SINUSITIS
     Dosage: (400 MG QID)

REACTIONS (3)
  - SWOLLEN TONGUE [None]
  - URTICARIA [None]
  - RASH [None]
